FAERS Safety Report 7816897-9 (Version None)
Quarter: 2011Q4

REPORT INFORMATION
  Report Type: 
  Country: None (occurrence: None)
  Receive Date: 20111017
  Receipt Date: 20111013
  Transmission Date: 20120403
  Serious: No
  Sender: FDA-Public Use
  Company Number: US-PFIZER INC-2011245707

PATIENT
  Age: 53 Year
  Sex: Female
  Weight: 56.689 kg

DRUGS (1)
  1. CLINDAMYCIN PHOSPHATE [Suspect]
     Indication: VAGINAL INFECTION
     Dosage: UNK, AS NEEDED
     Route: 067

REACTIONS (2)
  - VAGINAL HAEMORRHAGE [None]
  - VULVOVAGINAL INJURY [None]
